FAERS Safety Report 10168797 (Version 3)
Quarter: 2014Q2

REPORT INFORMATION
  Report Type: Report from Study
  Country: CA (occurrence: CA)
  Receive Date: 20140513
  Receipt Date: 20140519
  Transmission Date: 20141212
  Serious: Yes (Other)
  Sender: FDA-Public Use
  Company Number: CA-ROCHE-1367613

PATIENT
  Age: 72 Year
  Sex: Female

DRUGS (19)
  1. RITUXAN [Suspect]
     Indication: RHEUMATOID ARTHRITIS
     Dosage: ON 05/OCT/2012, THE PATIENT RECEIVED PREVIOUS DOSE FO RITUXIMAB.
     Route: 042
     Dates: start: 20120920
  2. METFORMIN [Concomitant]
     Route: 065
     Dates: start: 201301, end: 201301
  3. FOLIC ACID [Concomitant]
  4. VITAMIN D3 [Concomitant]
  5. TRIDURAL [Concomitant]
  6. LYRICA [Concomitant]
  7. ARAVA [Concomitant]
  8. INDAPAMIDE [Concomitant]
  9. ASA [Concomitant]
  10. DOCUSATE SODIUM [Concomitant]
  11. CRESTOR [Concomitant]
  12. JANUVIA [Concomitant]
  13. CORTISONE [Concomitant]
     Dosage: DISCONTINUED
     Route: 065
  14. PREDNISONE [Concomitant]
  15. DIPHENHYDRAMINE HCL [Concomitant]
     Indication: PREMEDICATION
     Route: 048
     Dates: start: 20120920
  16. ACETAMINOPHEN [Concomitant]
     Indication: PREMEDICATION
     Route: 048
     Dates: start: 20120920
  17. METHYLPREDNISOLONE [Concomitant]
     Indication: PREMEDICATION
     Route: 042
     Dates: start: 20120920
  18. IRBESARTAN [Concomitant]
  19. REPAGLINIDE [Concomitant]

REACTIONS (4)
  - Type 1 diabetes mellitus [Unknown]
  - Memory impairment [Unknown]
  - Back pain [Unknown]
  - Rheumatoid arthritis [Not Recovered/Not Resolved]
